FAERS Safety Report 6768251-9 (Version None)
Quarter: 2010Q2

REPORT INFORMATION
  Report Type: 
  Country: None (occurrence: None)
  Receive Date: 20100614
  Receipt Date: 20100526
  Transmission Date: 20101027
  Serious: Yes (Hospitalization)
  Sender: FDA-Public Use
  Company Number: US-BAYER-201022606NA

PATIENT
  Age: 39 Year
  Sex: Female
  Weight: 94 kg

DRUGS (4)
  1. CAMPATH [Suspect]
     Indication: MULTIPLE SCLEROSIS
     Dosage: TOTAL DAILY DOSE: 12 MG
     Route: 042
     Dates: start: 20100426, end: 20100430
  2. ACYCLOVIR [Concomitant]
     Indication: PROPHYLAXIS
     Dosage: TOTAL DAILY DOSE: 400 MG
     Route: 048
     Dates: start: 20100426
  3. ACYCLOVIR [Concomitant]
     Dosage: TOTAL DAILY DOSE: 1200 MG
     Route: 048
     Dates: start: 20100506, end: 20100514
  4. REBIF [Concomitant]
     Dosage: TOTAL DAILY DOSE: 44 ?G
     Dates: start: 20080407, end: 20100405

REACTIONS (3)
  - ABSCESS JAW [None]
  - CELLULITIS [None]
  - ORAL HERPES [None]
